FAERS Safety Report 5427990-2 (Version None)
Quarter: 2007Q3

REPORT INFORMATION
  Report Type: 
  Country: None (occurrence: None)
  Receive Date: 20070731
  Receipt Date: 20070410
  Transmission Date: 20080115
  Serious: No
  Sender: FDA-Public Use
  Company Number: US200704002178

PATIENT
  Age: 71 Year
  Sex: Female

DRUGS (7)
  1. BYETTA [Suspect]
     Indication: TYPE 2 DIABETES MELLITUS
     Dosage: 5 UG, SUBCUTANEOUS : 10 UG, SUBCUTANEOUS : 5 UG, 2/D, SUBCUTANEOUS : 10 UG, 2/D , SUBCUTANEOUS
     Route: 058
     Dates: start: 20050701, end: 20050101
  2. BYETTA [Suspect]
     Indication: TYPE 2 DIABETES MELLITUS
     Dosage: 5 UG, SUBCUTANEOUS : 10 UG, SUBCUTANEOUS : 5 UG, 2/D, SUBCUTANEOUS : 10 UG, 2/D , SUBCUTANEOUS
     Route: 058
     Dates: start: 20050101, end: 20050901
  3. BYETTA [Suspect]
     Indication: TYPE 2 DIABETES MELLITUS
     Dosage: 5 UG, SUBCUTANEOUS : 10 UG, SUBCUTANEOUS : 5 UG, 2/D, SUBCUTANEOUS : 10 UG, 2/D , SUBCUTANEOUS
     Route: 058
     Dates: start: 20061101, end: 20070101
  4. BYETTA [Suspect]
     Indication: TYPE 2 DIABETES MELLITUS
     Dosage: 5 UG, SUBCUTANEOUS : 10 UG, SUBCUTANEOUS : 5 UG, 2/D, SUBCUTANEOUS : 10 UG, 2/D , SUBCUTANEOUS
     Route: 058
     Dates: start: 20070101
  5. LIPITOR [Concomitant]
  6. FOSAMAX [Concomitant]
  7. NORVASC [Concomitant]

REACTIONS (4)
  - BLOOD GLUCOSE INCREASED [None]
  - CATARACT OPERATION [None]
  - CATARACT OPERATION COMPLICATION [None]
  - WEIGHT DECREASED [None]
